FAERS Safety Report 9684687 (Version 1)
Quarter: 2013Q4

REPORT INFORMATION
  Report Type: Spontaneous
  Country: US (occurrence: None)
  Receive Date: 20131108
  Receipt Date: 20131108
  Transmission Date: 20140711
  Serious: Yes (Hospitalization, Other)
  Sender: FDA-Public Use
  Company Number: ACO_39280_2013

PATIENT
  Age: 59 Year
  Sex: Female
  Weight: 98.4 kg

DRUGS (5)
  1. AMPYRA (DALFAMPRIDINE) TABLET, 10 MG [Suspect]
     Indication: GAIT DISTURBANCE
     Route: 048
     Dates: end: 201310
  2. COPAXONE [Concomitant]
  3. VITAMIN C [Concomitant]
  4. VITAMIN D (ERGOCALCIFEROL) [Concomitant]
  5. FLAXSEED OIL (FLAXSEED OIL) [Concomitant]

REACTIONS (2)
  - Convulsion [None]
  - Aphasia [None]
